FAERS Safety Report 5901564-9 (Version None)
Quarter: 2008Q3

REPORT INFORMATION
  Report Type: 
  Country: None (occurrence: None)
  Receive Date: 20080926
  Receipt Date: 20080926
  Transmission Date: 20090109
  Serious: No
  Sender: FDA-Public Use
  Company Number: None

PATIENT
  Sex: Male
  Weight: 104 kg

DRUGS (6)
  1. TAXOTERE [Suspect]
     Dosage: 544 MG
  2. PREDNISONE [Suspect]
     Dosage: 1040 MG
  3. CASODEX [Concomitant]
  4. DETROL [Concomitant]
  5. DILANTIN -PHENYTOIN SODIUM EXTENDED- [Concomitant]
  6. FIORINAL -ASPIRINE/BUTALBITAL/CAFFEINE- [Concomitant]

REACTIONS (1)
  - NEUTROPHIL COUNT DECREASED [None]
